FAERS Safety Report 6703458-8 (Version None)
Quarter: 2010Q2

REPORT INFORMATION
  Report Type: 
  Country: None (occurrence: None)
  Receive Date: 20100430
  Receipt Date: 20100421
  Transmission Date: 20101027
  Serious: No
  Sender: FDA-Public Use
  Company Number: US-ROXANE LABORATORIES, INC.-2010-RO-00503RO

PATIENT
  Sex: Male

DRUGS (2)
  1. LITHIUM CARBONATE [Suspect]
     Indication: BIPOLAR DISORDER
     Dosage: 1200 MG
     Route: 048
  2. ABILIFY [Concomitant]

REACTIONS (3)
  - FLUID RETENTION [None]
  - HYPOTHYROIDISM [None]
  - WEIGHT INCREASED [None]
